FAERS Safety Report 5471277-9 (Version None)
Quarter: 2007Q3

REPORT INFORMATION
  Report Type: 
  Country: None (occurrence: None)
  Receive Date: 20070928
  Receipt Date: 20070917
  Transmission Date: 20080115
  Serious: Yes (Death)
  Sender: FDA-Public Use
  Company Number: BY-PFIZER INC-2007077064

PATIENT
  Age: 68 Year

DRUGS (2)
  1. ZYVOX [Interacting]
     Indication: BACTERAEMIA
     Route: 042
  2. TIENAM [Suspect]

REACTIONS (1)
  - HAEMORRHAGE [None]
